FAERS Safety Report 22623091 (Version 2)
Quarter: 2023Q2

REPORT INFORMATION
  Report Type: Spontaneous
  Country: US (occurrence: US)
  Receive Date: 20230621
  Receipt Date: 20230621
  Transmission Date: 20230722
  Serious: No
  Sender: FDA-Public Use
  Company Number: US-ABBVIE-5297955

PATIENT
  Age: 57 Year
  Sex: Female

DRUGS (3)
  1. CYCLOSPORINE [Suspect]
     Active Substance: CYCLOSPORINE
     Indication: Dry eye
     Dosage: STRENGTH: 0.05%?PACK SIZE : 60X0.4MLVIAL ?1 DROP IN BOTH EYES TWICE A DAY (IN THE MORNING AND AT ...
     Route: 047
     Dates: start: 202306, end: 20230610
  2. CYCLOSPORINE [Suspect]
     Active Substance: CYCLOSPORINE
     Dosage: STRENGTH: 0.05%?PACK SIZE : 60X0.4MLVIAL
     Route: 047
     Dates: start: 20230614
  3. CYCLOSPORINE [Suspect]
     Active Substance: CYCLOSPORINE
     Dosage: STRENGTH: 0.05%?PACK SIZE : 60X0.4MLVIAL
     Route: 047
     Dates: start: 2018

REACTIONS (5)
  - Skin exfoliation [Recovering/Resolving]
  - Rash pruritic [Recovering/Resolving]
  - Periorbital inflammation [Recovering/Resolving]
  - Periorbital swelling [Recovering/Resolving]
  - Erythema [Recovering/Resolving]

NARRATIVE: CASE EVENT DATE: 20230601
